FAERS Safety Report 8950818 (Version 1)
Quarter: 2012Q4

REPORT INFORMATION
  Report Type: Spontaneous
  Country: US (occurrence: None)
  Receive Date: 20121204
  Receipt Date: 20121204
  Transmission Date: 20130627
  Serious: Yes (Hospitalization)
  Sender: FDA-Public Use
  Company Number: None

PATIENT
  Age: 93 Year
  Sex: Female

DRUGS (5)
  1. RANIBIZUMAB [Suspect]
     Indication: WET MACULAR DEGENERATION
     Dosage: PRN
     Route: 047
     Dates: start: 20121005, end: 20121005
  2. RANIBIZUMAB [Suspect]
     Indication: WET MACULAR DEGENERATION
     Dosage: PRN
     Route: 047
     Dates: start: 20110810, end: 20111207
  3. METOPROLOL [Concomitant]
  4. WARFARIN [Concomitant]
  5. COMBIGAN EYE DROPS [Concomitant]

REACTIONS (2)
  - Fall [None]
  - Pelvic fracture [None]
